FAERS Safety Report 6871262-6 (Version None)
Quarter: 2010Q3

REPORT INFORMATION
  Report Type: 
  Country: None (occurrence: None)
  Receive Date: 20100721
  Receipt Date: 20100705
  Transmission Date: 20110219
  Serious: Yes (Hospitalization, Other)
  Sender: FDA-Public Use
  Company Number: UK-ACCORD-002475

PATIENT
  Age: 43 Year
  Sex: Male
  Weight: 47 kg

DRUGS (7)
  1. FLUCONAZOLE [Suspect]
     Indication: MENINGITIS CRYPTOCOCCAL
     Dosage: 200.00-MG-1.0DAY /
  2. MYCOPHENOLATE MOFETIL [Suspect]
     Indication: IMMUNOSUPPRESSION
     Dosage: 360.00-MG-1.0DAY /
  3. VORICONAZOLE [Suspect]
     Indication: MENINGITIS CRYPTOCOCCAL
     Dosage: 800.00-MG-1.0DAYS ORAL
     Route: 048
  4. TACROLIMUS [Suspect]
     Indication: IMMUNOSUPPRESSION
     Dosage: 2.00-MG-1.0/ DAYS
  5. METHYLPREDNISOLONE [Suspect]
     Indication: IMMUNOSUPPRESSION
     Dosage: 4.00-MG-1.0/ DAYS
  6. AMPHOTERICIN B [Concomitant]
  7. LIPOSOME(AMPHOTERICIN B, LIPOSOME) [Concomitant]

REACTIONS (11)
  - BLOOD CORTISOL DECREASED [None]
  - BLOOD CREATININE INCREASED [None]
  - BLOOD UREA INCREASED [None]
  - DRUG LEVEL INCREASED [None]
  - DRUG RESISTANCE [None]
  - HAEMOGLOBIN DECREASED [None]
  - HYPONATRAEMIA [None]
  - INTRACRANIAL PRESSURE INCREASED [None]
  - MENINGITIS CRYPTOCOCCAL [None]
  - REFUSAL OF TREATMENT BY PATIENT [None]
  - VOMITING [None]
